APPROVED DRUG PRODUCT: BACITRACIN
Active Ingredient: BACITRACIN
Strength: 500 UNITS/GM
Dosage Form/Route: OINTMENT;TOPICAL
Application: A062799 | Product #001
Applicant: COMBE INC
Approved: May 14, 1987 | RLD: No | RS: No | Type: DISCN